FAERS Safety Report 5913214-6 (Version None)
Quarter: 2008Q4

REPORT INFORMATION
  Report Type: 
  Country: None (occurrence: None)
  Receive Date: 20081009
  Receipt Date: 20081002
  Transmission Date: 20090506
  Serious: Yes (Other)
  Sender: FDA-Public Use
  Company Number: CH-WYE-G02283008

PATIENT
  Age: 48 Year
  Sex: Male

DRUGS (7)
  1. EFFEXOR [Suspect]
     Indication: DEPRESSION
     Route: 048
     Dates: start: 20080101
  2. RITALIN [Concomitant]
  3. IRBESARTAN [Concomitant]
  4. QUILONORM [Concomitant]
  5. PROPRANOLOL HYDROCHLORIDE [Concomitant]
  6. RISPERDAL [Concomitant]
  7. HALDOL [Concomitant]

REACTIONS (1)
  - ELECTROCARDIOGRAM T WAVE INVERSION [None]
